FAERS Safety Report 7874922-3 (Version None)
Quarter: 2011Q4

REPORT INFORMATION
  Report Type: 
  Country: None (occurrence: None)
  Receive Date: 20111031
  Receipt Date: 20111026
  Transmission Date: 20120403
  Serious: Yes (Life-Threatening)
  Sender: FDA-Public Use
  Company Number: FR-JNJFOC-20111008428

PATIENT
  Sex: Male

DRUGS (6)
  1. METFORMIN HCL [Suspect]
     Indication: PRODUCT USED FOR UNKNOWN INDICATION
     Route: 065
  2. HALDOL [Suspect]
     Indication: PSYCHOTIC DISORDER
     Dosage: 2X50MG VIALS EVERY 28 DAYS
     Route: 030
     Dates: start: 20040426, end: 20110815
  3. DIPIPERON [Suspect]
     Indication: PRODUCT USED FOR UNKNOWN INDICATION
     Dosage: ON THE EVENING
     Route: 065
  4. TRIMEPRAZINE TARTRATE [Concomitant]
     Route: 065
  5. VALIUM [Concomitant]
     Dosage: 2-0-2
     Route: 065
  6. TRIHEXYPHENIDYL HYDROCHLORIDE [Concomitant]
     Dosage: ON MORNING AND EVENING
     Route: 065

REACTIONS (2)
  - WEIGHT DECREASED [None]
  - DECREASED APPETITE [None]
